FAERS Safety Report 16071498 (Version 1)
Quarter: 2019Q1

REPORT INFORMATION
  Report Type: Spontaneous
  Country: US (occurrence: US)
  Receive Date: 20190314
  Receipt Date: 20190314
  Transmission Date: 20190418
  Serious: No
  Sender: FDA-Public Use
  Company Number: US-PFIZER INC-2018244826

PATIENT
  Age: 7 Year
  Sex: Female
  Weight: 22.41 kg

DRUGS (5)
  1. GENOTROPIN [Suspect]
     Active Substance: SOMATROPIN
     Dosage: 1 MG, DAILY
     Route: 058
  2. GENOTROPIN [Suspect]
     Active Substance: SOMATROPIN
     Indication: TURNER^S SYNDROME
     Dosage: 0.9 MG, 1X/DAY
  3. NASONEX [Concomitant]
     Active Substance: MOMETASONE FUROATE
     Dosage: 50 UG, UNK
  4. OMEPRAZOLE AND SODIUM BICARBONATE [Concomitant]
     Active Substance: OMEPRAZOLE\SODIUM BICARBONATE
     Dosage: UNK
  5. ZOFRAN [Concomitant]
     Active Substance: ONDANSETRON HYDROCHLORIDE
     Dosage: 4 MG, UNK

REACTIONS (8)
  - Accidental exposure to product [Unknown]
  - Myalgia [Unknown]
  - Arthralgia [Unknown]
  - Abdominal pain [Unknown]
  - Exposure via skin contact [Unknown]
  - Injection site extravasation [Unknown]
  - Headache [Unknown]
  - Wrong technique in device usage process [Unknown]
